FAERS Safety Report 10204319 (Version 1)
Quarter: 2014Q2

REPORT INFORMATION
  Report Type: Report from Study
  Country: CN (occurrence: CN)
  Receive Date: 20140529
  Receipt Date: 20140529
  Transmission Date: 20141212
  Serious: Yes (Death)
  Sender: FDA-Public Use
  Company Number: CN-BAXTER-2014BAX027522

PATIENT
  Sex: 0

DRUGS (1)
  1. LOW CALCIUM PERITONEAL DIALYSIS SOLUTION ( LACTATE- G1.5%) [Suspect]
     Indication: RENAL FAILURE CHRONIC
     Route: 033

REACTIONS (1)
  - Death [Fatal]
